FAERS Safety Report 18777825 (Version 3)
Quarter: 2022Q1

REPORT INFORMATION
  Report Type: Spontaneous
  Country: US (occurrence: US)
  Receive Date: 20210122
  Receipt Date: 20220214
  Transmission Date: 20220423
  Serious: Yes (Hospitalization)
  Sender: FDA-Public Use
  Company Number: US-SEATTLE GENETICS-2020SGN03318

PATIENT
  Sex: Female

DRUGS (5)
  1. TUKYSA [Suspect]
     Active Substance: TUCATINIB
     Indication: Breast cancer female
     Dosage: 150 MG, UNK
     Route: 065
  2. TUKYSA [Suspect]
     Active Substance: TUCATINIB
     Dosage: 150 UNK
     Route: 065
  3. TUKYSA [Suspect]
     Active Substance: TUCATINIB
     Dosage: 150 UNK
     Route: 065
  4. TUKYSA [Suspect]
     Active Substance: TUCATINIB
     Dosage: 150 UNK
     Route: 065
  5. CAPECITABINE [Suspect]
     Active Substance: CAPECITABINE
     Indication: Breast cancer female
     Route: 065

REACTIONS (13)
  - Craniotomy [Unknown]
  - Upper limb fracture [Unknown]
  - Chest pain [Unknown]
  - Feeling abnormal [Unknown]
  - Eye movement disorder [Unknown]
  - Somnolence [Unknown]
  - Pain in extremity [Unknown]
  - Hordeolum [Unknown]
  - Tremor [Unknown]
  - Product dose omission issue [Unknown]
  - Urticaria [Unknown]
  - Diarrhoea [Recovering/Resolving]
  - Nausea [Unknown]
